FAERS Safety Report 15232880 (Version 1)
Quarter: 2018Q3

REPORT INFORMATION
  Report Type: Spontaneous
  Country: US (occurrence: US)
  Receive Date: 20180802
  Receipt Date: 20180802
  Transmission Date: 20181010
  Serious: No
  Sender: FDA-Public Use
  Company Number: US-BAYER-2018-140822

PATIENT
  Age: 56 Year
  Sex: Female
  Weight: 117.96 kg

DRUGS (1)
  1. ALEVE [Suspect]
     Active Substance: NAPROXEN SODIUM
     Indication: PAIN
     Dosage: 1 WITH BREAKFAST
     Route: 048
     Dates: end: 20180723

REACTIONS (2)
  - Product use issue [Unknown]
  - Drug effect incomplete [Unknown]
